FAERS Safety Report 20483507 (Version 1)
Quarter: 2022Q1

REPORT INFORMATION
  Report Type: Spontaneous
  Country: CN (occurrence: None)
  Receive Date: 20220217
  Receipt Date: 20220217
  Transmission Date: 20220423
  Serious: Yes (Other)
  Sender: FDA-Public Use
  Company Number: CN-ROCHE-3028138

PATIENT
  Age: 66 Year
  Sex: Male

DRUGS (5)
  1. TECENTRIQ [Suspect]
     Active Substance: ATEZOLIZUMAB
     Indication: Small cell lung cancer
     Dosage: 08-JUN-2021,29-JUN-2021,21-JUL-2021,12-AUG-2021
     Route: 065
  2. TECENTRIQ [Suspect]
     Active Substance: ATEZOLIZUMAB
     Dosage: 08-SEP-2021, 07-OCT-2021
     Route: 065
  3. ETOPOSIDE [Concomitant]
     Active Substance: ETOPOSIDE
     Indication: Small cell lung cancer
     Dosage: 08-JUN-2021,29-JUN-2021,21-JUL-2021,12-AUG-2021: : DAY2-4
     Route: 065
  4. CARBOPLATIN [Concomitant]
     Active Substance: CARBOPLATIN
     Indication: Small cell lung cancer
     Dosage: 08-JUN-2021,29-JUN-2021,21-JUL-2021,12-AUG-2021: : DAY2
     Route: 065
  5. AMRUBICIN [Concomitant]
     Active Substance: AMRUBICIN
     Indication: Small cell lung cancer
     Dosage: FOR 3 DAYS
     Route: 065
     Dates: start: 20211209

REACTIONS (1)
  - Pneumonia fungal [Unknown]
